FAERS Safety Report 24675672 (Version 1)
Quarter: 2024Q4

REPORT INFORMATION
  Report Type: Spontaneous
  Country: SE (occurrence: SE)
  Receive Date: 20241128
  Receipt Date: 20241128
  Transmission Date: 20250115
  Serious: Yes (Hospitalization)
  Sender: PFIZER
  Company Number: None

PATIENT
  Age: 45 Year
  Sex: Female

DRUGS (2)
  1. CYKLOKAPRON [Suspect]
     Active Substance: TRANEXAMIC ACID
     Indication: Prophylaxis
     Dosage: SINGLE DOSE IN PREPARATION FOR SURGERY
     Route: 042
     Dates: start: 20241120, end: 20241120
  2. ONDANSETRON B. BRAUN [Concomitant]
     Dosage: 2 ML, SINGLE
     Route: 042
     Dates: start: 20241120, end: 20241120

REACTIONS (1)
  - Myoclonus [Recovered/Resolved]

NARRATIVE: CASE EVENT DATE: 20241120
